FAERS Safety Report 15647282 (Version 2)
Quarter: 2019Q1

REPORT INFORMATION
  Report Type: Spontaneous
  Country: PT (occurrence: PT)
  Receive Date: 20181122
  Receipt Date: 20190118
  Transmission Date: 20190417
  Serious: Yes (Life-Threatening, Hospitalization, Other)
  Sender: FDA-Public Use
  Company Number: PT-BRISTOL-MYERS SQUIBB COMPANY-BMS-2018-108568

PATIENT
  Age: 71 Year
  Sex: Female

DRUGS (1)
  1. METFORMIN HYDROCHLORIDE. [Suspect]
     Active Substance: METFORMIN HYDROCHLORIDE
     Indication: TYPE 2 DIABETES MELLITUS
     Dosage: UNK
     Route: 048

REACTIONS (6)
  - Toxicity to various agents [Recovering/Resolving]
  - Acute kidney injury [Recovered/Resolved]
  - Cardio-respiratory arrest [Recovered/Resolved]
  - Lactic acidosis [Recovered/Resolved]
  - Overdose [Unknown]
  - Hyperkalaemia [Unknown]
